FAERS Safety Report 6059441-1 (Version None)
Quarter: 2009Q1

REPORT INFORMATION
  Report Type: 
  Country: None (occurrence: None)
  Receive Date: 20090130
  Receipt Date: 20090116
  Transmission Date: 20090719
  Serious: Yes (Other)
  Sender: FDA-Public Use
  Company Number: PHHY2008FR31715

PATIENT
  Age: 61 Year
  Sex: Female

DRUGS (3)
  1. ZOMETA [Suspect]
     Indication: METASTASES TO BONE
     Dosage: UNK
  2. DRUG THERAPY NOS [Concomitant]
  3. CALCIUM [Concomitant]

REACTIONS (5)
  - BRADYCARDIA [None]
  - FATIGUE [None]
  - HYPERSOMNIA [None]
  - PALLOR [None]
  - RESPIRATORY RATE DECREASED [None]
